FAERS Safety Report 6694247-1 (Version None)
Quarter: 2010Q2

REPORT INFORMATION
  Report Type: 
  Country: None (occurrence: None)
  Receive Date: 20100423
  Receipt Date: 20100420
  Transmission Date: 20101027
  Serious: Yes (Death, Life-Threatening)
  Sender: FDA-Public Use
  Company Number: JP-BAYER-200912135BYL

PATIENT
  Age: 72 Year
  Sex: Male
  Weight: 58 kg

DRUGS (14)
  1. NEXAVAR [Suspect]
     Indication: HEPATIC NEOPLASM MALIGNANT
     Dosage: TOTAL DAILY DOSE: 800 MG  UNIT DOSE: 200 MG
     Route: 048
     Dates: start: 20090619, end: 20090625
  2. NEXAVAR [Suspect]
     Dosage: TOTAL DAILY DOSE: 400 MG  UNIT DOSE: 200 MG
     Route: 048
     Dates: start: 20090630, end: 20090913
  3. GLUCOBAY [Concomitant]
     Dosage: UNIT DOSE: 100 MG
     Route: 048
  4. UBRETID [Concomitant]
     Dosage: UNIT DOSE: 5 MG
     Route: 048
  5. URIEF [Concomitant]
     Dosage: UNIT DOSE: 4 MG
     Route: 048
  6. CONIEL [Concomitant]
     Dosage: UNIT DOSE: 2 MG
     Route: 048
  7. CANDESARTAN CILEXETIL [Concomitant]
     Dosage: UNIT DOSE: 8 MG
     Route: 048
  8. LASIX [Concomitant]
     Dosage: UNIT DOSE: 20 MG
     Route: 048
  9. URSO 250 [Concomitant]
     Dosage: UNIT DOSE: 100 MG
     Route: 048
  10. LIVACT [Concomitant]
     Dosage: SINCE BEFORE ADMINISTRATION
     Route: 048
  11. GLUFAST [Concomitant]
     Dosage: UNIT DOSE: 10 MG
     Route: 048
  12. PASTARON [Concomitant]
     Indication: PROPHYLAXIS
     Dosage: SINCE BEFORE ADMINISTRATION
     Route: 061
  13. IRRIBOW [Concomitant]
     Dosage: UNIT DOSE: 2.5 ?G
     Route: 048
  14. BIOFERMIN R [Concomitant]
     Dosage: UNIT DOSE: 6 MG
     Route: 048

REACTIONS (5)
  - DIARRHOEA [None]
  - INTRA-ABDOMINAL HAEMORRHAGE [None]
  - LIVER CARCINOMA RUPTURED [None]
  - PALMAR-PLANTAR ERYTHRODYSAESTHESIA SYNDROME [None]
  - RASH [None]
